FAERS Safety Report 11060683 (Version 1)
Quarter: 2015Q2

REPORT INFORMATION
  Report Type: Spontaneous
  Country: SE (occurrence: SE)
  Receive Date: 20150423
  Receipt Date: 20150423
  Transmission Date: 20150821
  Serious: Yes (Hospitalization)
  Sender: FDA-Public Use
  Company Number: SE-INTERMUNE, INC.-201504IM014019

PATIENT
  Sex: Female

DRUGS (3)
  1. ESBRIET [Suspect]
     Active Substance: PIRFENIDONE
     Dosage: 2403 MG
     Route: 048
     Dates: start: 20150211
  2. ESBRIET [Suspect]
     Active Substance: PIRFENIDONE
     Indication: IDIOPATHIC PULMONARY FIBROSIS
     Route: 048
     Dates: start: 20150127
  3. ESBRIET [Suspect]
     Active Substance: PIRFENIDONE
     Dosage: 1602 MG
     Route: 048

REACTIONS (6)
  - Weight decreased [Unknown]
  - Frequent bowel movements [Unknown]
  - Rash pruritic [Unknown]
  - Nausea [Recovered/Resolved]
  - Dermatitis contact [Unknown]
  - Back pain [Unknown]

NARRATIVE: CASE EVENT DATE: 20150325
